FAERS Safety Report 10446848 (Version 1)
Quarter: 2014Q3

REPORT INFORMATION
  Report Type: Spontaneous
  Country: GB (occurrence: GB)
  Receive Date: 20140911
  Receipt Date: 20140911
  Transmission Date: 20150326
  Serious: Yes (Hospitalization)
  Sender: FDA-Public Use
  Company Number: GB-TEVA-506616ISR

PATIENT
  Age: 76 Year

DRUGS (17)
  1. OMEPRAZOLE. [Concomitant]
     Active Substance: OMEPRAZOLE
  2. CIPROFLOXACIN. [Suspect]
     Active Substance: CIPROFLOXACIN
     Dosage: 1000 MILLIGRAM DAILY;
     Route: 048
     Dates: start: 20140728
  3. E45 [Concomitant]
  4. SALBUTAMOL [Concomitant]
     Active Substance: ALBUTEROL
     Route: 055
  5. ASPIRIN. [Concomitant]
     Active Substance: ASPIRIN
  6. CARBOCISTEINE [Concomitant]
     Active Substance: CARBOCYSTEINE
  7. GAVISCON [Concomitant]
     Active Substance: ALUMINUM HYDROXIDE\MAGNESIUM CARBONATE
     Dosage: 10-15MLS AS NECESSARY
  8. GLYCERYL TRINITRATE [Concomitant]
     Active Substance: NITROGLYCERIN
     Dosage: 400MCG SPRAY
  9. TIOTROPIUM [Concomitant]
     Active Substance: TIOTROPIUM
  10. TRAMADOL [Concomitant]
     Active Substance: TRAMADOL
  11. AMINOPHYLLINE [Concomitant]
     Active Substance: AMINOPHYLLINE
  12. SIMVASTATIN. [Concomitant]
     Active Substance: SIMVASTATIN
     Dosage: 40MG EVERY NIGHT.
  13. ADCAL-D3 [Concomitant]
     Active Substance: CALCIUM CARBONATE\CHOLECALCIFEROL
     Route: 048
  14. HYDROXOCOBALAMIN [Concomitant]
     Active Substance: HYDROXOCOBALAMIN
     Dosage: USED AS DIRECTED.?1MG/1ML
  15. SERETIDE [Concomitant]
     Active Substance: FLUTICASONE FUROATE\SALMETEROL XINAFOATE
     Dosage: 2P BD
     Route: 055
  16. ALENDRONIC ACID [Concomitant]
     Active Substance: ALENDRONIC ACID
  17. QUININE [Concomitant]
     Active Substance: QUININE

REACTIONS (3)
  - Peripheral swelling [Unknown]
  - Dizziness [Unknown]
  - Pruritus [Unknown]
